FAERS Safety Report 7027445-8 (Version None)
Quarter: 2010Q4

REPORT INFORMATION
  Report Type: 
  Country: None (occurrence: None)
  Receive Date: 20101004
  Receipt Date: 20100922
  Transmission Date: 20110411
  Serious: Yes (Other)
  Sender: FDA-Public Use
  Company Number: US-ALLERGAN-1012429US

PATIENT
  Age: 82 Year

DRUGS (2)
  1. POLYTRIM SOLUTION [Suspect]
     Indication: PROPHYLAXIS
     Dosage: UNK
     Route: 047
     Dates: start: 20040101, end: 20040101
  2. PREDNISOLONE ACETATE [Suspect]
     Indication: PRODUCT USED FOR UNKNOWN INDICATION
     Dosage: UNK
     Route: 047
     Dates: start: 20040101, end: 20040101

REACTIONS (1)
  - ENDOPHTHALMITIS [None]
